FAERS Safety Report 6736079-1 (Version None)
Quarter: 2010Q2

REPORT INFORMATION
  Report Type: 
  Country: None (occurrence: None)
  Receive Date: 20100521
  Receipt Date: 20100510
  Transmission Date: 20101027
  Serious: Yes (Hospitalization)
  Sender: FDA-Public Use
  Company Number: US-PFIZER INC-2010058689

PATIENT
  Sex: Female

DRUGS (1)
  1. DILANTIN-125 [Suspect]

REACTIONS (3)
  - BRAIN NEOPLASM [None]
  - HEPATIC FUNCTION ABNORMAL [None]
  - LOCAL SWELLING [None]
